FAERS Safety Report 8274122-1 (Version None)
Quarter: 2012Q2

REPORT INFORMATION
  Report Type: 
  Country: None (occurrence: None)
  Receive Date: 20120411
  Receipt Date: 20120405
  Transmission Date: 20120825
  Serious: Yes (Hospitalization)
  Sender: FDA-Public Use
  Company Number: FR-UCBSA-054756

PATIENT
  Age: 8 Year
  Sex: Male

DRUGS (2)
  1. VALPROATE SODIUM [Concomitant]
     Dosage: UNKNOWN DOSE
     Route: 048
  2. VIMPAT [Suspect]
     Dosage: UNKNOWN DOSE
     Route: 048

REACTIONS (1)
  - LUNG INFECTION [None]
